FAERS Safety Report 9524868 (Version 1)
Quarter: 2013Q1

REPORT INFORMATION
  Report Type: Spontaneous
  Country: US (occurrence: None)
  Receive Date: 20130314
  Receipt Date: 20130314
  Transmission Date: 20140127
  Serious: No
  Sender: FDA-Public Use
  Company Number: 1301USA006661

PATIENT
  Sex: 0

DRUGS (2)
  1. VICTRELIS (BOCEPREVIR) CAPSULE, 200MG [Suspect]
     Dosage: 200 MG, UNK, ORAL
     Route: 048
  2. RIBAVARIN [Suspect]
     Dosage: ORAL
     Route: 048

REACTIONS (1)
  - Stomatitis [None]
